FAERS Safety Report 21394637 (Version 4)
Quarter: 2023Q1

REPORT INFORMATION
  Report Type: Report from Study
  Country: BE (occurrence: None)
  Receive Date: 20220930
  Receipt Date: 20230124
  Transmission Date: 20230418
  Serious: No
  Sender: FDA-Public Use
  Company Number: BE-ROCHE-3100442

PATIENT
  Age: 63 Year
  Sex: Female
  Weight: 83.5 kg

DRUGS (2)
  1. ATEZOLIZUMAB [Suspect]
     Active Substance: ATEZOLIZUMAB
     Indication: HER2 positive breast cancer
     Dosage: LAST DOSE OF ADMINISTRATION: 11/MAY/2022? LAST DOSE BEFORE SAE :16/FEB/2022?THERAPY STOP DATE: 15/MA
     Route: 041
     Dates: start: 20220105
  2. ADO-TRASTUZUMAB EMTANSINE [Suspect]
     Active Substance: ADO-TRASTUZUMAB EMTANSINE
     Indication: HER2 positive breast cancer
     Dosage: LAST DOSE OF ADMINISTRATION: 09/MAR/2022, 11/MAY/2022
     Route: 042
     Dates: start: 20220105

REACTIONS (2)
  - Immune-mediated lung disease [Recovered/Resolved]
  - Autoimmune nephritis [Recovered/Resolved]

NARRATIVE: CASE EVENT DATE: 20220309
